FAERS Safety Report 6222424-2 (Version None)
Quarter: 2009Q2

REPORT INFORMATION
  Report Type: 
  Country: None (occurrence: None)
  Receive Date: 20090608
  Receipt Date: 20090522
  Transmission Date: 20091009
  Serious: Yes (Hospitalization)
  Sender: FDA-Public Use
  Company Number: NL-GENENTECH-284083

PATIENT
  Sex: Female

DRUGS (4)
  1. BEVACIZUMAB [Suspect]
     Indication: ACUTE MYELOID LEUKAEMIA
     Dosage: 800 UNK, UNK
     Route: 042
     Dates: start: 20081202
  2. DAUNORUBICIN HCL [Suspect]
     Indication: ACUTE MYELOID LEUKAEMIA
     Dosage: 90 UNK, UNK
     Route: 042
     Dates: start: 20081202
  3. CYTARABINE [Suspect]
     Indication: ACUTE MYELOID LEUKAEMIA
     Dosage: 400 UNK, UNK
     Route: 043
     Dates: start: 20081202
  4. CYTARABINE [Suspect]
     Dosage: 4000 UNK, UNK
     Dates: start: 20090109

REACTIONS (2)
  - DEPRESSION [None]
  - INFECTION [None]
